FAERS Safety Report 4940176-0 (Version None)
Quarter: 2006Q1

REPORT INFORMATION
  Report Type: 
  Country: None (occurrence: None)
  Receive Date: 20060310
  Receipt Date: 20060208
  Transmission Date: 20060701
  Serious: Yes (Hospitalization)
  Sender: FDA-Public Use
  Company Number: US-BRISTOL-MYERS SQUIBB COMPANY-13277264

PATIENT
  Age: 58 Year
  Sex: Female

DRUGS (5)
  1. CETUXIMAB [Suspect]
     Indication: COLORECTAL CANCER METASTATIC
     Route: 042
     Dates: start: 20060130, end: 20060130
  2. IRINOTECAN HCL [Suspect]
     Indication: COLORECTAL CANCER METASTATIC
     Route: 042
     Dates: start: 20060123, end: 20060123
  3. IMODIUM [Concomitant]
     Dates: start: 20050912
  4. CLINDAMYCIN [Concomitant]
     Dates: start: 20051024
  5. SENOKOT [Concomitant]
     Dates: start: 20060123

REACTIONS (1)
  - ILEUS [None]
